FAERS Safety Report 9023516 (Version 1)
Quarter: 2013Q1

REPORT INFORMATION
  Report Type: Report from Study
  Country: US (occurrence: US)
  Receive Date: 20130121
  Receipt Date: 20130121
  Transmission Date: 20140127
  Serious: Yes (Hospitalization)
  Sender: FDA-Public Use
  Company Number: US-ABBOTT-13P-163-1036248-00

PATIENT
  Age: 53 Year
  Sex: Male

DRUGS (3)
  1. HUMIRA [Suspect]
     Indication: CROHN^S DISEASE
     Route: 058
     Dates: start: 201211, end: 20121213
  2. PROZAC [Concomitant]
     Indication: DEPRESSION
  3. SEROQUEL [Concomitant]
     Indication: INSOMNIA

REACTIONS (1)
  - Gastrointestinal obstruction [Unknown]
